FAERS Safety Report 6425311-X (Version None)
Quarter: 2009Q4

REPORT INFORMATION
  Report Type: 
  Country: None (occurrence: None)
  Receive Date: 20091103
  Receipt Date: 20091029
  Transmission Date: 20100525
  Serious: Yes (Hospitalization, Disabling, Congenital Anomaly)
  Sender: FDA-Public Use
  Company Number: A0679382A

PATIENT
  Sex: Male
  Weight: 3.1 kg

DRUGS (6)
  1. PAXIL CR [Suspect]
     Indication: DEPRESSION
     Dosage: 50MG PER DAY
     Dates: start: 20030401, end: 20031201
  2. MACROBID [Concomitant]
  3. ANTIBIOTICS [Concomitant]
     Dates: start: 20031012
  4. BENADRYL [Concomitant]
     Dates: start: 20030811
  5. DILAUDID [Concomitant]
     Dates: start: 20030811
  6. PHENERGAN HCL [Concomitant]
     Dates: start: 20030811

REACTIONS (4)
  - DIGEORGE'S SYNDROME [None]
  - DRUG EXPOSURE DURING PREGNANCY [None]
  - FALLOT'S TETRALOGY [None]
  - PULMONARY ARTERY STENOSIS CONGENITAL [None]
